FAERS Safety Report 15312609 (Version 3)
Quarter: 2018Q4

REPORT INFORMATION
  Report Type: Spontaneous
  Country: US (occurrence: US)
  Receive Date: 20180823
  Receipt Date: 20181030
  Transmission Date: 20190204
  Serious: Yes (Other)
  Sender: FDA-Public Use
  Company Number: US-BAYER-2018-154997

PATIENT
  Age: 28 Year
  Sex: Female

DRUGS (2)
  1. PRENATAL [Concomitant]
     Active Substance: VITAMINS
  2. MIRENA [Suspect]
     Active Substance: LEVONORGESTREL
     Dosage: 20 MCG/24HR, CONT
     Route: 015
     Dates: start: 20170215, end: 20170821

REACTIONS (4)
  - Genital haemorrhage [None]
  - Pain [None]
  - Abdominal pain lower [None]
  - Paranoia [None]

NARRATIVE: CASE EVENT DATE: 2017
